FAERS Safety Report 13988778 (Version 1)
Quarter: 2017Q3

REPORT INFORMATION
  Report Type: Spontaneous
  Country: US (occurrence: US)
  Receive Date: 20170919
  Receipt Date: 20170919
  Transmission Date: 20171128
  Serious: Yes (Disabling)
  Sender: FDA-Public Use
  Company Number: None

PATIENT
  Age: 69 Year
  Sex: Male
  Weight: 96.3 kg

DRUGS (6)
  1. CIPROFLOXACIN. [Suspect]
     Active Substance: CIPROFLOXACIN
     Indication: URINARY TRACT INFECTION
     Route: 048
     Dates: start: 20160502, end: 20161223
  2. LISINOPRIL. [Concomitant]
     Active Substance: LISINOPRIL
  3. METOPROLOL TART [Concomitant]
     Active Substance: METOPROLOL TARTRATE
  4. CLONIDINE. [Concomitant]
     Active Substance: CLONIDINE
  5. REPATHA [Concomitant]
     Active Substance: EVOLOCUMAB
  6. HYDROCHLOROTHIAZIDE. [Concomitant]
     Active Substance: HYDROCHLOROTHIAZIDE

REACTIONS (4)
  - Myalgia [None]
  - Impaired self-care [None]
  - Disease recurrence [None]
  - Urinary tract infection [None]

NARRATIVE: CASE EVENT DATE: 20160502
